FAERS Safety Report 8884459 (Version 2)
Quarter: 2013Q1

REPORT INFORMATION
  Report Type: Spontaneous
  Country: US (occurrence: US)
  Receive Date: 20121102
  Receipt Date: 20130103
  Transmission Date: 20140127
  Serious: No
  Sender: FDA-Public Use
  Company Number: US-ASTRAZENECA-2012SE82753

PATIENT
  Age: 65 Year
  Sex: Female

DRUGS (3)
  1. CRESTOR [Suspect]
     Route: 048
  2. ZEEL [Concomitant]
  3. CAFFEINE [Concomitant]

REACTIONS (3)
  - Dehydration [Unknown]
  - Malaise [Unknown]
  - Palpitations [Unknown]
